FAERS Safety Report 5240141-2 (Version None)
Quarter: 2007Q1

REPORT INFORMATION
  Report Type: 
  Country: None (occurrence: None)
  Receive Date: 20070216
  Receipt Date: 20070208
  Transmission Date: 20070707
  Serious: Yes (Other)
  Sender: FDA-Public Use
  Company Number: JP-PFIZER INC-2007011299

PATIENT
  Age: 74 Year
  Sex: Female

DRUGS (15)
  1. AROMASIN [Suspect]
     Dosage: DAILY DOSE:25MG-FREQ:DAILY
     Route: 048
  2. BASEN [Concomitant]
     Route: 048
  3. DEPROMEL [Concomitant]
     Route: 048
  4. BLOPRESS [Concomitant]
     Route: 048
  5. LANIRAPID [Concomitant]
     Route: 048
  6. KETOBUN A [Concomitant]
     Route: 048
  7. TORSEMIDE [Concomitant]
     Route: 048
  8. DIHYDROERGOTAMINE MESYLATE [Concomitant]
     Route: 048
  9. DANTRIUM [Concomitant]
     Route: 048
  10. LANSOPRAZOLE [Concomitant]
     Route: 048
  11. LEVOFLOXACIN [Concomitant]
     Route: 048
  12. FERROUS CITRATE [Concomitant]
     Route: 048
  13. NITROGLYCERIN [Concomitant]
     Route: 062
  14. ALFACALCIDOL [Concomitant]
     Route: 048
  15. ALENDRONATE SODIUM [Concomitant]
     Route: 048

REACTIONS (1)
  - INTERSTITIAL LUNG DISEASE [None]
